FAERS Safety Report 7600929-7 (Version None)
Quarter: 2011Q3

REPORT INFORMATION
  Report Type: 
  Country: None (occurrence: None)
  Receive Date: 20110706
  Receipt Date: 20110706
  Transmission Date: 20111222
  Serious: Yes (Other)
  Sender: FDA-Public Use
  Company Number: None

PATIENT
  Sex: Female
  Weight: 67 kg

DRUGS (2)
  1. SERTRALINE HYDROCHLORIDE [Suspect]
     Indication: OBSESSIVE-COMPULSIVE DISORDER
     Dosage: 100 MG QD PO - 3 YRS AGO
     Route: 048
  2. SERTRALINE HYDROCHLORIDE [Suspect]
     Indication: MAJOR DEPRESSION
     Dosage: 100 MG QD PO - 3 YRS AGO
     Route: 048

REACTIONS (10)
  - AGITATION [None]
  - OBSESSIVE-COMPULSIVE DISORDER [None]
  - FATIGUE [None]
  - HEART RATE INCREASED [None]
  - PRODUCT SUBSTITUTION ISSUE [None]
  - DEPRESSION [None]
  - NAUSEA [None]
  - CONDITION AGGRAVATED [None]
  - DIZZINESS [None]
  - DISEASE RECURRENCE [None]
